FAERS Safety Report 4290991-4 (Version None)
Quarter: 2004Q1

REPORT INFORMATION
  Report Type: 
  Country: None (occurrence: None)
  Receive Date: 20040211
  Receipt Date: 20031023
  Transmission Date: 20041129
  Serious: No
  Sender: FDA-Public Use
  Company Number: US-GLAXOSMITHKLINE-A0431433A

PATIENT
  Age: 17 Year
  Sex: Male

DRUGS (1)
  1. PAXIL [Suspect]
     Indication: POST-TRAUMATIC STRESS DISORDER
     Dosage: 30MG PER DAY
     Route: 048
     Dates: start: 20030301, end: 20030901

REACTIONS (3)
  - DRUG WITHDRAWAL SYNDROME [None]
  - PALPITATIONS [None]
  - PANIC ATTACK [None]
